FAERS Safety Report 5443549-5 (Version None)
Quarter: 2007Q3

REPORT INFORMATION
  Report Type: 
  Country: None (occurrence: None)
  Receive Date: 20070730
  Receipt Date: 20070327
  Transmission Date: 20080115
  Serious: Yes (Other)
  Sender: FDA-Public Use
  Company Number: 239000

PATIENT
  Age: 68 Year
  Sex: Female

DRUGS (1)
  1. RITUXAN [Suspect]
     Indication: NON-HODGKIN'S LYMPHOMA
     Dosage: 375 NG/M2, INTRAVENOUS
     Route: 042
     Dates: start: 20020101

REACTIONS (1)
  - B-CELL LYMPHOMA RECURRENT [None]
